FAERS Safety Report 18512110 (Version 1)
Quarter: 2020Q4

REPORT INFORMATION
  Report Type: Spontaneous
  Country: US (occurrence: US)
  Receive Date: 20201117
  Receipt Date: 20201117
  Transmission Date: 20210114
  Serious: Yes (Other)
  Sender: FDA-Public Use
  Company Number: US-JNJFOC-20201117739

PATIENT
  Sex: Male

DRUGS (2)
  1. ZYPREXA [Suspect]
     Active Substance: OLANZAPINE
     Indication: PRODUCT USED FOR UNKNOWN INDICATION
     Route: 065
  2. RISPERDAL [Suspect]
     Active Substance: RISPERIDONE
     Indication: PRODUCT USED FOR UNKNOWN INDICATION
     Route: 065

REACTIONS (10)
  - Gynaecomastia [Unknown]
  - Fungal infection [Unknown]
  - Cellulitis [Unknown]
  - Bladder disorder [Unknown]
  - Heart rate increased [Unknown]
  - Eye infection [Unknown]
  - Skin striae [Unknown]
  - Pharyngitis [Unknown]
  - Emotional distress [Unknown]
  - Crying [Unknown]
